FAERS Safety Report 8188020-5 (Version None)
Quarter: 2012Q1

REPORT INFORMATION
  Report Type: 
  Country: None (occurrence: None)
  Receive Date: 20120306
  Receipt Date: 20120221
  Transmission Date: 20120608
  Serious: Yes (Other)
  Sender: FDA-Public Use
  Company Number: US-WATSON-2012-03278

PATIENT
  Age: 83 Year
  Sex: Female

DRUGS (2)
  1. GABAPENTIN [Suspect]
     Indication: PAIN
     Dosage: 300 MG, QHS
     Route: 065
  2. GABAPENTIN [Suspect]
     Indication: HYPOAESTHESIA

REACTIONS (2)
  - POLLAKIURIA [None]
  - GASTROINTESTINAL MOTILITY DISORDER [None]
